FAERS Safety Report 17056090 (Version 1)
Quarter: 2019Q4

REPORT INFORMATION
  Report Type: Report from Study
  Country: None (occurrence: PT)
  Receive Date: 20191121
  Receipt Date: 20191121
  Transmission Date: 20200122
  Serious: Yes (Hospitalization)
  Sender: FDA-Public Use
  Company Number: PT-ABBVIE-19K-130-3006469-00

PATIENT
  Age: 25 Year
  Sex: Female

DRUGS (1)
  1. HUMIRA [Suspect]
     Active Substance: ADALIMUMAB
     Indication: CROHN^S DISEASE
     Route: 058
     Dates: start: 20180822, end: 20191002

REACTIONS (5)
  - Dysphagia [Recovered/Resolved]
  - Pyrexia [Recovered/Resolved]
  - Aphthous ulcer [Recovered/Resolved]
  - Oral infection [Recovered/Resolved]
  - Pharyngitis [Recovered/Resolved]

NARRATIVE: CASE EVENT DATE: 2019
